FAERS Safety Report 13120581 (Version 5)
Quarter: 2017Q1

REPORT INFORMATION
  Report Type: Spontaneous
  Country: US (occurrence: US)
  Receive Date: 20170117
  Receipt Date: 20170307
  Transmission Date: 20170428
  Serious: No
  Sender: FDA-Public Use
  Company Number: US-PFIZER INC-2017016306

PATIENT
  Age: 70 Year
  Sex: Female
  Weight: 85 kg

DRUGS (1)
  1. IBRANCE [Suspect]
     Active Substance: PALBOCICLIB
     Indication: BREAST CANCER METASTATIC
     Dosage: 125 MG, CYCLIC, DAY 1-21 Q 28 DAYS, (DAILY FOR 21 DAYS THAN 7 DAYS OFF)
     Route: 048
     Dates: start: 20161230

REACTIONS (11)
  - Rash papular [Unknown]
  - Glossodynia [Recovered/Resolved]
  - Anxiety [Unknown]
  - Stomatitis [Recovered/Resolved]
  - Dyspepsia [Not Recovered/Not Resolved]
  - Hot flush [Recovering/Resolving]
  - Pain in extremity [Unknown]
  - Gingival bleeding [Recovered/Resolved]
  - Stress [Unknown]
  - Skin fissures [Unknown]
  - Arthritis [Unknown]
